FAERS Safety Report 5574652-7 (Version None)
Quarter: 2007Q4

REPORT INFORMATION
  Report Type: 
  Country: None (occurrence: None)
  Receive Date: 20071226
  Receipt Date: 20071226
  Transmission Date: 20080405
  Serious: Yes (Disabling)
  Sender: FDA-Public Use
  Company Number: None

PATIENT
  Age: 59 Year
  Sex: Female
  Weight: 71.6683 kg

DRUGS (1)
  1. FOSAMAX [Suspect]
     Indication: BONE DENSITY DECREASED
     Dosage: 35 MG ONCE A WEEK
     Dates: start: 20050203, end: 20071202

REACTIONS (5)
  - BONE DISORDER [None]
  - GINGIVAL DISORDER [None]
  - GINGIVAL PAIN [None]
  - IMPAIRED HEALING [None]
  - OSTEONECROSIS [None]
